FAERS Safety Report 12133705 (Version 1)
Quarter: 2016Q1

REPORT INFORMATION
  Report Type: Spontaneous
  Country: FR (occurrence: FR)
  Receive Date: 20160301
  Receipt Date: 20160301
  Transmission Date: 20160526
  Serious: Yes (Other)
  Sender: FDA-Public Use
  Company Number: FR-ACCORD-038370

PATIENT
  Age: 59 Year
  Sex: Female

DRUGS (13)
  1. FLUOROURACIL ACCORD [Suspect]
     Active Substance: FLUOROURACIL
     Indication: ADENOCARCINOMA OF COLON
     Route: 042
     Dates: start: 201510, end: 20151110
  2. LYRICA [Concomitant]
     Active Substance: PREGABALIN
  3. SERESTA [Concomitant]
     Active Substance: OXAZEPAM
  4. INNOHEP [Concomitant]
     Active Substance: TINZAPARIN SODIUM
  5. FORLAX [Concomitant]
     Active Substance: POLYETHYLENE GLYCOL 4000
  6. OXALIPLATIN. [Suspect]
     Active Substance: OXALIPLATIN
     Indication: ADENOCARCINOMA OF COLON
     Route: 042
     Dates: start: 201510, end: 20151110
  7. MIANSERIN [Concomitant]
     Active Substance: MIANSERIN
  8. FOLINIC ACID [Concomitant]
     Active Substance: LEUCOVORIN
     Dates: start: 201510, end: 20151110
  9. CACIT D3 [Concomitant]
     Active Substance: CALCIUM\CHOLECALCIFEROL
  10. BISOCE [Concomitant]
     Active Substance: BISOPROLOL
  11. PARACETAMOL [Concomitant]
     Active Substance: ACETAMINOPHEN
  12. EUPANTOL [Concomitant]
     Active Substance: PANTOPRAZOLE SODIUM
  13. CORTANCYL [Concomitant]
     Active Substance: PREDNISONE

REACTIONS (3)
  - Hepatic function abnormal [Recovered/Resolved]
  - Gamma-glutamyltransferase increased [Recovered/Resolved]
  - Blood alkaline phosphatase increased [Recovered/Resolved]

NARRATIVE: CASE EVENT DATE: 20151108
